FAERS Safety Report 4450762-2 (Version None)
Quarter: 2004Q3

REPORT INFORMATION
  Report Type: 
  Country: None (occurrence: None)
  Receive Date: 20040913
  Receipt Date: 20040603
  Transmission Date: 20050211
  Serious: No
  Sender: FDA-Public Use
  Company Number: 2004-BP-04385BP(0)

PATIENT
  Age: 60 Year
  Sex: Male
  Weight: 110.2 kg

DRUGS (5)
  1. SPIRIVA [Suspect]
     Indication: ASTHMA
     Dosage: 18 MCG (18 MCG,1 IN 1D), IH
     Dates: start: 20040517
  2. COMBIVENT (COMBIVENT0 [Concomitant]
  3. PULMICORT [Concomitant]
  4. AMOXICILLIN [Concomitant]
  5. QUININE (QUININE) [Concomitant]

REACTIONS (2)
  - DRY MOUTH [None]
  - GLOSSODYNIA [None]
